FAERS Safety Report 10957146 (Version 1)
Quarter: 2015Q1

REPORT INFORMATION
  Report Type: Spontaneous
  Country: CA (occurrence: CA)
  Receive Date: 20150326
  Receipt Date: 20150326
  Transmission Date: 20150721
  Serious: Yes (Death, Other)
  Sender: FDA-Public Use
  Company Number: CA-GILEAD-2012-0063769

PATIENT
  Age: 79 Year
  Sex: Female

DRUGS (11)
  1. AMBRISENTAN [Suspect]
     Active Substance: AMBRISENTAN
     Indication: PULMONARY HYPERTENSION
     Dosage: 10MG PER DAY
     Route: 048
     Dates: start: 20110830
  2. VIAGRA [Concomitant]
     Active Substance: SILDENAFIL CITRATE
  3. OXYGEN. [Concomitant]
     Active Substance: OXYGEN
     Dosage: UNK
  4. FUROSEMIDE. [Concomitant]
     Active Substance: FUROSEMIDE
  5. VITAMIN D                          /00107901/ [Concomitant]
     Active Substance: ERGOCALCIFEROL
  6. NORVASC [Concomitant]
     Active Substance: AMLODIPINE BESYLATE
  7. LIPITOR [Concomitant]
     Active Substance: ATORVASTATIN CALCIUM
  8. CALCIUM [Concomitant]
     Active Substance: CALCIUM
  9. NASONEX [Concomitant]
     Active Substance: MOMETASONE FUROATE
  10. ATACAND [Concomitant]
     Active Substance: CANDESARTAN CILEXETIL
  11. TYLENOL [Concomitant]
     Active Substance: ACETAMINOPHEN
     Dosage: 500MG AS REQUIRED

REACTIONS (2)
  - Death [Fatal]
  - Nasal congestion [Not Recovered/Not Resolved]

NARRATIVE: CASE EVENT DATE: 20110830
